FAERS Safety Report 21425650 (Version 1)
Quarter: 2022Q4

REPORT INFORMATION
  Report Type: Spontaneous
  Country: DE (occurrence: DE)
  Receive Date: 20221008
  Receipt Date: 20221008
  Transmission Date: 20230113
  Serious: Yes (Other)
  Sender: FDA-Public Use
  Company Number: DE-BAXTER-2022BAX020363

PATIENT

DRUGS (24)
  1. BORTEZOMIB [Suspect]
     Active Substance: BORTEZOMIB
     Indication: Plasma cell myeloma refractory
     Dosage: UNK,(FIFTH LINE TREATMENT)
     Route: 065
     Dates: start: 20170601, end: 20170612
  2. BORTEZOMIB [Suspect]
     Active Substance: BORTEZOMIB
     Dosage: UNK, (MOST RECENT LINE TREATMENT, VDT PACE)
     Route: 065
     Dates: start: 20220215, end: 20220902
  3. DOXORUBICIN [Suspect]
     Active Substance: DOXORUBICIN
     Indication: Plasma cell myeloma refractory
     Dosage: UNK,(MOST RECENT LINE TREATMENT, VDT PACE)
     Route: 065
     Dates: start: 20220215, end: 20220902
  4. LENALIDOMIDE [Suspect]
     Active Substance: LENALIDOMIDE
     Indication: Plasma cell myeloma refractory
     Dosage: UNK,(FIRST LINE TREATMENT)
     Route: 065
     Dates: start: 20130501, end: 20130927
  5. LENALIDOMIDE [Suspect]
     Active Substance: LENALIDOMIDE
     Dosage: UNK,(THIRD LINE TREATMENT)
     Route: 065
     Dates: start: 20140220, end: 20150601
  6. LENALIDOMIDE [Suspect]
     Active Substance: LENALIDOMIDE
     Dosage: UNK,(FOURTH LINE TREATMENT)
     Route: 065
     Dates: start: 20160301, end: 20170215
  7. LENALIDOMIDE [Suspect]
     Active Substance: LENALIDOMIDE
     Dosage: UNK,(SIXTH LINE TREATMENT)
     Route: 065
     Dates: start: 20170718, end: 20170903
  8. ETOPOSIDE [Suspect]
     Active Substance: ETOPOSIDE
     Indication: Plasma cell myeloma refractory
     Dosage: UNK,(MOST RECENT LINE TREATMENT, VDT PACE)
     Route: 065
     Dates: start: 20220215, end: 20220902
  9. IXAZOMIB [Suspect]
     Active Substance: IXAZOMIB
     Indication: Plasma cell myeloma refractory
     Dosage: UNK,(SIXTH LINE TREATMENT)
     Route: 065
     Dates: start: 20170718, end: 20170903
  10. DEXAMETHASONE [Suspect]
     Active Substance: DEXAMETHASONE
     Indication: Plasma cell myeloma refractory
     Dosage: UNK,(FIRST LINE TREATMENT)
     Route: 065
     Dates: start: 20130501, end: 20130927
  11. DEXAMETHASONE [Suspect]
     Active Substance: DEXAMETHASONE
     Dosage: UNK,(THIRD LINE TREATMENT)
     Route: 065
     Dates: start: 20140220, end: 20150601
  12. DEXAMETHASONE [Suspect]
     Active Substance: DEXAMETHASONE
     Dosage: UNK,(FOURTH LINE TREATMENT)
     Route: 065
     Dates: start: 20160301, end: 20170215
  13. DEXAMETHASONE [Suspect]
     Active Substance: DEXAMETHASONE
     Dosage: UNK,(FIFTH LINE TREATMENT)
     Dates: start: 20170601, end: 20170612
  14. DEXAMETHASONE [Suspect]
     Active Substance: DEXAMETHASONE
     Dosage: UNK,(SIXTH LINE TREATMENT)
     Route: 065
     Dates: start: 20170718, end: 20170903
  15. DEXAMETHASONE [Suspect]
     Active Substance: DEXAMETHASONE
     Dosage: UNK,(MOST RECENT LINE TREATMENT, VDT PACE)
     Route: 065
     Dates: start: 20200215, end: 20220902
  16. CISPLATIN [Suspect]
     Active Substance: CISPLATIN
     Indication: Plasma cell myeloma refractory
     Dosage: UNK,(MOST RECENT LINE TREATMENT, VDT PACE)
     Route: 065
     Dates: start: 20220215, end: 20220902
  17. BELANTAMAB MAFODOTIN [Suspect]
     Active Substance: BELANTAMAB MAFODOTIN
     Indication: Plasma cell myeloma refractory
     Dosage: UNK
     Route: 065
  18. THALIDOMIDE [Suspect]
     Active Substance: THALIDOMIDE
     Indication: Plasma cell myeloma refractory
     Dosage: UNK,(MOST RECENT LINE TREATMENT, VDT PACE)
     Route: 065
     Dates: start: 20220215, end: 20220902
  19. DEXAMETHASONE [Suspect]
     Active Substance: DEXAMETHASONE
     Indication: Plasma cell myeloma refractory
     Dosage: UNK
     Route: 065
  20. CYCLOPHOSPHAMIDE [Suspect]
     Active Substance: CYCLOPHOSPHAMIDE
     Indication: Plasma cell myeloma refractory
     Dosage: UNK,(FIRST LINE TREATMENT)
     Route: 065
     Dates: start: 20130501, end: 20130927
  21. CYCLOPHOSPHAMIDE [Suspect]
     Active Substance: CYCLOPHOSPHAMIDE
     Dosage: UNK,(FIFTH LINE TREATMENT.)
     Route: 065
     Dates: start: 20170601, end: 20170612
  22. CYCLOPHOSPHAMIDE [Suspect]
     Active Substance: CYCLOPHOSPHAMIDE
     Dosage: UNK,(MOST RECENT LINE TREATMENT, VDT PACE)
     Route: 065
     Dates: start: 20220215, end: 20220902
  23. ELOTUZUMAB [Suspect]
     Active Substance: ELOTUZUMAB
  24. POMALIDOMIDE [Suspect]
     Active Substance: POMALIDOMIDE

REACTIONS (1)
  - Disease progression [Unknown]
